FAERS Safety Report 9568755 (Version 2)
Quarter: 2013Q3

REPORT INFORMATION
  Report Type: Spontaneous
  Country: US (occurrence: US)
  Receive Date: 20130930
  Receipt Date: 20130930
  Transmission Date: 20140515
  Serious: No
  Sender: FDA-Public Use
  Company Number: US-AMGEN-USASP2013048033

PATIENT
  Age: 42 Year
  Sex: Female
  Weight: 58.05 kg

DRUGS (6)
  1. ENBREL [Suspect]
     Indication: PSORIATIC ARTHROPATHY
     Dosage: 50 MG, QWK
     Route: 058
     Dates: start: 20130705
  2. ENBREL [Suspect]
     Indication: PSORIASIS
  3. XANAX [Concomitant]
     Dosage: 2 MG, UNK
  4. PRILOSEC                           /00661201/ [Concomitant]
     Dosage: 20 MG, UNK
  5. TOPAMAX [Concomitant]
     Dosage: 200 MG, UNK
  6. DEPO-PROVERA [Concomitant]
     Dosage: 400/ML UNK, UNK

REACTIONS (10)
  - Weight increased [Recovering/Resolving]
  - Fatigue [Recovering/Resolving]
  - Mass [Recovered/Resolved]
  - Tenderness [Recovered/Resolved]
  - White blood cell count increased [Recovered/Resolved]
  - Local swelling [Recovered/Resolved]
  - Injection site erythema [Recovered/Resolved]
  - Injection site pruritus [Recovered/Resolved]
  - Injection site reaction [Recovering/Resolving]
  - Injection site discolouration [Recovering/Resolving]
